FAERS Safety Report 11610803 (Version 1)
Quarter: 2015Q4

REPORT INFORMATION
  Report Type: Spontaneous
  Country: US (occurrence: None)
  Receive Date: 20151007
  Receipt Date: 20151007
  Transmission Date: 20160304
  Serious: Yes (Other)
  Sender: FDA-Public Use
  Company Number: None

PATIENT
  Age: 25 Year
  Sex: Female
  Weight: 81.65 kg

DRUGS (1)
  1. SMZ/TMP DS 800-160 [Suspect]
     Active Substance: SULFAMETHOXAZOLE\TRIMETHOPRIM
     Indication: STAPHYLOCOCCAL INFECTION
     Dosage: 800-160
     Route: 048

REACTIONS (3)
  - Abortion spontaneous [None]
  - Exposure during pregnancy [None]
  - Feeling abnormal [None]

NARRATIVE: CASE EVENT DATE: 20150918
